FAERS Safety Report 10449530 (Version 1)
Quarter: 2014Q3

REPORT INFORMATION
  Report Type: Spontaneous
  Country: US (occurrence: None)
  Receive Date: 20140911
  Receipt Date: 20140911
  Transmission Date: 20150326
  Serious: Yes (Disabling)
  Sender: FDA-Public Use
  Company Number: None

PATIENT
  Age: 64 Year
  Sex: Female
  Weight: 145.15 kg

DRUGS (1)
  1. INVOKANA [Suspect]
     Active Substance: CANAGLIFLOZIN
     Indication: DIABETES MELLITUS
     Dosage: 1 PILL  ONCE DAILY TAKEN BY MOUTH
     Route: 048
     Dates: start: 20140704, end: 20140808

REACTIONS (5)
  - Injection site vesicles [None]
  - Blood creatinine increased [None]
  - Blood potassium increased [None]
  - Urinary tract infection [None]
  - Injection site erythema [None]

NARRATIVE: CASE EVENT DATE: 20140704
